FAERS Safety Report 5942173-5 (Version None)
Quarter: 2008Q4

REPORT INFORMATION
  Report Type: 
  Country: None (occurrence: None)
  Receive Date: 20081104
  Receipt Date: 20081104
  Transmission Date: 20090506
  Serious: No
  Sender: FDA-Public Use
  Company Number: None

PATIENT
  Age: 75 Year
  Sex: Male

DRUGS (1)
  1. LENALIDOMIDE [Suspect]
     Indication: MULTIPLE MYELOMA
     Dosage: 25 MG EVERY DAY PO
     Route: 048
     Dates: start: 20061120

REACTIONS (3)
  - BONE MARROW FAILURE [None]
  - FEBRILE NEUTROPENIA [None]
  - THROMBOCYTOPENIA [None]
